FAERS Safety Report 24556672 (Version 1)
Quarter: 2024Q4

REPORT INFORMATION
  Report Type: Spontaneous
  Country: US (occurrence: US)
  Receive Date: 20241028
  Receipt Date: 20241028
  Transmission Date: 20250115
  Serious: Yes (Life-Threatening, Hospitalization)
  Sender: ENDO
  Company Number: US-ENDO USA, INC.-2024-050191

PATIENT
  Age: 76 Year
  Sex: Female

DRUGS (2)
  1. BACLOFEN [Suspect]
     Active Substance: BACLOFEN
     Indication: Product used for unknown indication
     Dosage: UNK UNKNOWN, UNKNOWN
     Route: 065
  2. TRAMADOL HYDROCHLORIDE [Suspect]
     Active Substance: TRAMADOL HYDROCHLORIDE
     Indication: Product used for unknown indication
     Dosage: UNK UNKNOWN, UNKNOWN
     Route: 065

REACTIONS (6)
  - Pulseless electrical activity [Recovered/Resolved]
  - Somatosensory evoked potentials abnormal [Recovered/Resolved]
  - Status epilepticus [Recovered/Resolved]
  - Coma [Recovered/Resolved]
  - Seizure [Recovered/Resolved]
  - Overdose [Recovered/Resolved]
